FAERS Safety Report 26130261 (Version 1)
Quarter: 2025Q4

REPORT INFORMATION
  Report Type: Spontaneous
  Country: US (occurrence: None)
  Receive Date: 20251205
  Receipt Date: 20251205
  Transmission Date: 20260117
  Serious: Yes (Other)
  Sender: FDA-CTU
  Company Number: None

PATIENT
  Age: 46 Year
  Sex: Female
  Weight: 76.05 kg

DRUGS (3)
  1. BIMZELX [Suspect]
     Active Substance: BIMEKIZUMAB-BKZX
     Indication: Ankylosing spondylitis
     Dosage: OTHER FREQUENCY : 28 DAYS;
     Route: 058
     Dates: start: 20251015
  2. BENADRYL [Concomitant]
     Active Substance: DIPHENHYDRAMINE HYDROCHLORIDE
  3. PEPCID [Concomitant]
     Active Substance: FAMOTIDINE

REACTIONS (5)
  - Hypersensitivity [None]
  - Swelling face [None]
  - Rash [None]
  - Drug ineffective [None]
  - Condition aggravated [None]

NARRATIVE: CASE EVENT DATE: 20251205
